FAERS Safety Report 6217902-6 (Version None)
Quarter: 2009Q2

REPORT INFORMATION
  Report Type: 
  Country: None (occurrence: None)
  Receive Date: 20090608
  Receipt Date: 20090525
  Transmission Date: 20091009
  Serious: Yes (Hospitalization)
  Sender: FDA-Public Use
  Company Number: SE-ELI_LILLY_AND_COMPANY-SE200905005791

PATIENT
  Age: 79 Year
  Sex: Male

DRUGS (5)
  1. GEMZAR [Suspect]
     Indication: PROSTATE CANCER
     Dosage: 2350 MG, EVERY CYCLE
     Route: 042
     Dates: start: 20010227, end: 20010320
  2. ESTRADURIN [Concomitant]
     Dosage: 80 MG, UNKNOWN
  3. TAVEGYL [Concomitant]
     Dosage: 1 MG, UNKNOWN
  4. CETIPRIN NOVUM [Concomitant]
     Dosage: 200 MG, UNKNOWN
  5. CITODON FORTE [Concomitant]
     Dosage: 1 G/60 MG, UNKNOWN

REACTIONS (8)
  - ASTHENIA [None]
  - BLOOD CREATININE INCREASED [None]
  - BLOOD UREA INCREASED [None]
  - HAEMOGLOBIN DECREASED [None]
  - HYDRONEPHROSIS [None]
  - OBSTRUCTIVE UROPATHY [None]
  - OEDEMA PERIPHERAL [None]
  - WEIGHT DECREASED [None]
